FAERS Safety Report 4821914-4 (Version None)
Quarter: 2005Q4

REPORT INFORMATION
  Report Type: 
  Country: None (occurrence: None)
  Receive Date: 20051103
  Receipt Date: 20051021
  Transmission Date: 20060501
  Serious: Yes (Death, Other)
  Sender: FDA-Public Use
  Company Number: 2004102828

PATIENT
  Age: 75 Year
  Sex: Female
  Weight: 77 kg

DRUGS (11)
  1. CELECOXIB (CELECOXIB) [Suspect]
     Indication: ARTHRALGIA
     Dosage: (100 MG), ORAL
     Route: 048
     Dates: start: 20031227, end: 20041112
  2. PARACETAMOL (PARACETAMOL) [Concomitant]
  3. CODEINE PHOSPHATE (CODEINE PHOSPHATE) [Concomitant]
  4. RANITIDINE HCL [Concomitant]
  5. PROCYCLIDINE HYDROCHLORIDE 2MG TAB [Concomitant]
  6. FERROUS SULPHATE (FEROUS SULFATE0 [Concomitant]
  7. CO-AMOXICLAV (AMOXICILLIN TRIHYDRATE, CLAVULANATE POTASSIUM) [Concomitant]
  8. ACETYLSALICYLIC ACID SRT [Concomitant]
  9. GAVISCON [Concomitant]
  10. TRIMETHOPRIM [Concomitant]
  11. CELECOXIB (CELECOXIB) [Concomitant]

REACTIONS (6)
  - DUODENAL ULCER PERFORATION [None]
  - LABORATORY TEST ABNORMAL [None]
  - MEAN CELL HAEMOGLOBIN CONCENTRATION INCREASED [None]
  - ORAL INTAKE REDUCED [None]
  - PERITONITIS [None]
  - RED BLOOD CELL COUNT DECREASED [None]
